FAERS Safety Report 20313563 (Version 1)
Quarter: 2022Q1

REPORT INFORMATION
  Report Type: Spontaneous
  Country: US (occurrence: US)
  Receive Date: 20220109
  Receipt Date: 20220109
  Transmission Date: 20220423
  Serious: No
  Sender: FDA-Public Use
  Company Number: US-SA-SAC20220102000165

PATIENT
  Age: 53 Year
  Sex: Female

DRUGS (10)
  1. DUPIXENT [Suspect]
     Active Substance: DUPILUMAB
     Indication: Illness
     Dosage: 600 MG, QOW
     Route: 058
     Dates: start: 20211220
  2. RIBOFLAVIN [Concomitant]
     Active Substance: RIBOFLAVIN
  3. CALCIUM\VITAMIN D [Concomitant]
     Active Substance: CALCIUM\VITAMIN D
     Dosage: UNK
  4. VITAMIN D2 [Concomitant]
     Active Substance: ERGOCALCIFEROL
  5. FISH OIL [Concomitant]
     Active Substance: FISH OIL
  6. ATORVASTATIN CALCIUM [Concomitant]
     Active Substance: ATORVASTATIN CALCIUM
  7. VITAMINS NOS [Concomitant]
     Active Substance: VITAMINS
  8. VITAMIN B COMPLEX [Concomitant]
     Active Substance: CYANOCOBALAMIN\DEXPANTHENOL\NIACINAMIDE\PYRIDOXINE HYDROCHLORIDE\RIBOFLAVIN 5^-PHOSPHATE SODIUM\THIA
  9. MAGNESIUM [Concomitant]
     Active Substance: MAGNESIUM
  10. DAILY-VITE [Concomitant]

REACTIONS (3)
  - Oral herpes [Not Recovered/Not Resolved]
  - Product use issue [Unknown]
  - Product use in unapproved indication [Unknown]

NARRATIVE: CASE EVENT DATE: 20211220
